FAERS Safety Report 13249721 (Version 1)
Quarter: 2017Q1

REPORT INFORMATION
  Report Type: Spontaneous
  Country: US (occurrence: US)
  Receive Date: 20170218
  Receipt Date: 20170218
  Transmission Date: 20170428
  Serious: No
  Sender: FDA-Public Use
  Company Number: US-ALLERGAN-1673214US

PATIENT
  Sex: Male

DRUGS (3)
  1. DOXYCYCLINE. [Concomitant]
     Active Substance: DOXYCYCLINE
     Indication: ROSACEA
     Dosage: 50 MG, QD
     Route: 048
  2. RESTASIS [Suspect]
     Active Substance: CYCLOSPORINE
     Indication: OCULAR ROSACEA
     Dosage: UNK, BID
     Route: 047
     Dates: start: 201608, end: 201608
  3. REFRESH PLUS [Concomitant]
     Active Substance: CARBOXYMETHYLCELLULOSE SODIUM
     Indication: OCULAR ROSACEA
     Dosage: UNK
     Route: 047
     Dates: start: 2011

REACTIONS (3)
  - Insomnia [Recovered/Resolved]
  - Limb discomfort [Recovered/Resolved]
  - Off label use [Unknown]
